FAERS Safety Report 21196123 (Version 2)
Quarter: 2022Q4

REPORT INFORMATION
  Report Type: Spontaneous
  Country: US (occurrence: US)
  Receive Date: 20220810
  Receipt Date: 20221020
  Transmission Date: 20230113
  Serious: No
  Sender: FDA-Public Use
  Company Number: US-PFIZER INC-PV202200039898

PATIENT
  Age: 41 Year
  Sex: Female

DRUGS (1)
  1. XELJANZ XR [Suspect]
     Active Substance: TOFACITINIB CITRATE
     Indication: Rheumatoid arthritis
     Dosage: 11 MG, 1X/DAY
     Route: 048
     Dates: start: 202205

REACTIONS (7)
  - Intentional dose omission [Unknown]
  - Product dose omission in error [Unknown]
  - Malaise [Unknown]
  - Depression [Unknown]
  - Discouragement [Unknown]
  - Musculoskeletal stiffness [Unknown]
  - Condition aggravated [Unknown]
